FAERS Safety Report 26021168 (Version 1)
Quarter: 2025Q4

REPORT INFORMATION
  Report Type: Spontaneous
  Country: US (occurrence: None)
  Receive Date: 20251108
  Receipt Date: 20251108
  Transmission Date: 20260118
  Serious: Yes (Hospitalization)
  Sender: FDA-CTU
  Company Number: None

PATIENT
  Sex: Female

DRUGS (1)
  1. ARANESP [Suspect]
     Active Substance: DARBEPOETIN ALFA
     Indication: Nephrogenic anaemia
     Dosage: OTHER FREQUENCY : ONCE A WEEK;?
     Route: 058
     Dates: start: 20251030

REACTIONS (7)
  - Pneumonia [None]
  - Hypersensitivity [None]
  - Pericardial effusion [None]
  - Weight increased [None]
  - Dysphonia [None]
  - Lethargy [None]
  - Oxygen saturation decreased [None]
